FAERS Safety Report 6732616-1 (Version None)
Quarter: 2010Q2

REPORT INFORMATION
  Report Type: 
  Country: None (occurrence: None)
  Receive Date: 20100519
  Receipt Date: 20100517
  Transmission Date: 20101027
  Serious: Yes (Death, Hospitalization)
  Sender: FDA-Public Use
  Company Number: GB-JNJFOC-20091202732

PATIENT
  Age: 31 Year
  Sex: Female

DRUGS (2)
  1. PARACETAMOL [Suspect]
  2. PARACETAMOL [Suspect]
     Indication: DRUG USE FOR UNKNOWN INDICATION

REACTIONS (3)
  - CIRCULATORY COLLAPSE [None]
  - HEPATIC FAILURE [None]
  - OVERDOSE [None]
